FAERS Safety Report 7184218-3 (Version None)
Quarter: 2010Q4

REPORT INFORMATION
  Report Type: 
  Country: None (occurrence: None)
  Receive Date: 20101222
  Receipt Date: 20101126
  Transmission Date: 20110411
  Serious: Yes (Other)
  Sender: FDA-Public Use
  Company Number: US-PFIZER INC-HQWYE003724FEB06

PATIENT
  Sex: Female

DRUGS (7)
  1. PREMPRO [Suspect]
     Dosage: UNK
  2. PREMARIN [Suspect]
     Dosage: UNK
  3. PROVERA [Suspect]
     Dosage: UNK
  4. CYCRIN [Suspect]
     Dosage: UNK
  5. ESTRADIOL [Suspect]
     Dosage: UNK
  6. ESTROGEN NOS [Suspect]
     Dosage: UNK
  7. MEDROXYPROGESTERONE [Suspect]
     Dosage: UNK

REACTIONS (1)
  - BREAST CANCER [None]
